FAERS Safety Report 4748624-6 (Version None)
Quarter: 2005Q3

REPORT INFORMATION
  Report Type: 
  Country: None (occurrence: None)
  Receive Date: 20050817
  Receipt Date: 20050801
  Transmission Date: 20060218
  Serious: Yes (Death)
  Sender: FDA-Public Use
  Company Number: 05USA0169

PATIENT
  Age: 68 Year
  Sex: Male

DRUGS (6)
  1. AGGRASTAT [Suspect]
     Indication: ANGINA UNSTABLE
     Dosage: 0.23MG/ML
     Dates: start: 20050421, end: 20050421
  2. SIMVASTATIN [Suspect]
     Indication: HYPERLIPIDAEMIA
     Dosage: 40MG QD
     Dates: start: 20050421
  3. DIGOXIN [Suspect]
     Indication: ATRIAL FIBRILLATION
     Dates: start: 20050421
  4. DIGOXIN [Suspect]
     Indication: CARDIAC FAILURE
     Dates: start: 20050421
  5. BISOPROLOL FUMARATE [Suspect]
     Dates: start: 20050421
  6. ENOXAPARIN SODIUM [Suspect]
     Dates: start: 20050421

REACTIONS (3)
  - ANGINA UNSTABLE [None]
  - CARDIOGENIC SHOCK [None]
  - MYOCARDIAL INFARCTION [None]
